FAERS Safety Report 6599652-X (Version None)
Quarter: 2010Q1

REPORT INFORMATION
  Report Type: 
  Country: None (occurrence: None)
  Receive Date: 20100216
  Receipt Date: 20100205
  Transmission Date: 20100710
  Serious: Yes (Hospitalization, Other)
  Sender: FDA-Public Use
  Company Number: 2010SP002959

PATIENT
  Age: 25 Year
  Sex: Female

DRUGS (3)
  1. IMPLANON [Suspect]
     Indication: DRUG USE FOR UNKNOWN INDICATION
     Dosage: 1 DF; SC
     Route: 058
     Dates: start: 20060101, end: 20090601
  2. IMPLANON [Suspect]
     Indication: DRUG USE FOR UNKNOWN INDICATION
     Dosage: 1 DF; SC
     Route: 058
     Dates: start: 20090625, end: 20100122
  3. SOLU-MEDROL [Suspect]
     Indication: MULTIPLE SCLEROSIS
     Dosage: 1 GM; QD; 500 MG; QD
     Dates: start: 20100107, end: 20100107

REACTIONS (9)
  - BLISTER [None]
  - DEVICE DISLOCATION [None]
  - HYPOAESTHESIA [None]
  - MOTOR DYSFUNCTION [None]
  - MULTIPLE SCLEROSIS [None]
  - MYELITIS [None]
  - NECK PAIN [None]
  - PARAESTHESIA [None]
  - URTICARIA [None]
